FAERS Safety Report 8266904-7 (Version None)
Quarter: 2012Q2

REPORT INFORMATION
  Report Type: 
  Country: None (occurrence: None)
  Receive Date: 20120404
  Receipt Date: 20120404
  Transmission Date: 20120825
  Serious: Yes (Hospitalization)
  Sender: FDA-Public Use
  Company Number: None

PATIENT
  Sex: Female
  Weight: 40.31 kg

DRUGS (1)
  1. CISPLATIN [Suspect]
     Dosage: 68 MG

REACTIONS (13)
  - HYPERKALAEMIA [None]
  - MALNUTRITION [None]
  - DEHYDRATION [None]
  - WEIGHT DECREASED [None]
  - DIARRHOEA [None]
  - HYPONATRAEMIA [None]
  - HYPOCALCAEMIA [None]
  - DECREASED APPETITE [None]
  - HYDRONEPHROSIS [None]
  - HYPOALBUMINAEMIA [None]
  - APHAGIA [None]
  - FLUID INTAKE REDUCED [None]
  - BLOOD GLUCOSE INCREASED [None]
